FAERS Safety Report 7346394-9 (Version None)
Quarter: 2011Q1

REPORT INFORMATION
  Report Type: 
  Country: None (occurrence: None)
  Receive Date: 20110301
  Receipt Date: 20110216
  Transmission Date: 20110831
  Serious: Yes (Death)
  Sender: FDA-Public Use
  Company Number: 2011BN000008

PATIENT
  Age: 49 Year
  Sex: Male

DRUGS (5)
  1. CARMUSTINE [Suspect]
     Indication: NON-HODGKIN'S LYMPHOMA
  2. MELPHALAN HYDROCHLORIDE [Suspect]
     Indication: NON-HODGKIN'S LYMPHOMA
  3. ETOPOSIDE [Suspect]
     Indication: NON-HODGKIN'S LYMPHOMA
  4. FLUCONAZOLE [Suspect]
     Indication: ANTIFUNGAL PROPHYLAXIS
  5. CYTARABINE [Suspect]
     Indication: NON-HODGKIN'S LYMPHOMA

REACTIONS (4)
  - KLEBSIELLA SEPSIS [None]
  - TRICHOSPORON INFECTION [None]
  - NEUTROPENIC COLITIS [None]
  - SHOCK [None]
